FAERS Safety Report 4597346-3 (Version None)
Quarter: 2005Q1

REPORT INFORMATION
  Report Type: 
  Country: None (occurrence: None)
  Receive Date: 20050303
  Receipt Date: 20040120
  Transmission Date: 20050727
  Serious: Yes (Death, Life-Threatening)
  Sender: FDA-Public Use
  Company Number: JP-BRISTOL-MYERS SQUIBB COMPANY-12482097

PATIENT
  Age: 55 Year
  Sex: Male

DRUGS (5)
  1. ZERIT [Suspect]
     Indication: ACQUIRED IMMUNODEFICIENCY SYNDROME
     Route: 048
     Dates: start: 20000618, end: 20030910
  2. EPIVIR [Suspect]
     Indication: ACQUIRED IMMUNODEFICIENCY SYNDROME
     Route: 048
     Dates: start: 20000618, end: 20030910
  3. KALETRA [Suspect]
     Indication: ACQUIRED IMMUNODEFICIENCY SYNDROME
     Route: 048
     Dates: start: 20020304, end: 20030910
  4. BAKTAR [Concomitant]
     Route: 048
     Dates: start: 20020403, end: 20030910
  5. VIRACEPT [Concomitant]
     Route: 048
     Dates: start: 20000618, end: 20020303

REACTIONS (1)
  - LUNG NEOPLASM MALIGNANT [None]
